FAERS Safety Report 6844038-3 (Version None)
Quarter: 2010Q3

REPORT INFORMATION
  Report Type: 
  Country: None (occurrence: None)
  Receive Date: 20100714
  Receipt Date: 20100714
  Transmission Date: 20110219
  Serious: No
  Sender: FDA-Public Use
  Company Number: None

PATIENT
  Age: 50 Year
  Sex: Female
  Weight: 81.6475 kg

DRUGS (1)
  1. YASMIN [Suspect]
     Indication: UTERINE HAEMORRHAGE
     Dosage: 3MG 1 TAB/DAY PO
     Route: 048
     Dates: start: 20040211, end: 20040301

REACTIONS (1)
  - HAEMORRHAGE INTRACRANIAL [None]
